FAERS Safety Report 16081415 (Version 1)
Quarter: 2019Q1

REPORT INFORMATION
  Report Type: Spontaneous
  Country: CA (occurrence: CA)
  Receive Date: 20190316
  Receipt Date: 20190316
  Transmission Date: 20190418
  Serious: Yes (Other)
  Sender: FDA-Public Use
  Company Number: CA-AUROBINDO-AUR-APL-2019-013674

PATIENT

DRUGS (12)
  1. KETOCONAZOLE. [Concomitant]
     Active Substance: KETOCONAZOLE
     Indication: PRODUCT USED FOR UNKNOWN INDICATION
     Dosage: 800 MILLIGRAM, ONCE A DAY
     Route: 048
  2. SIGNIFOR [Suspect]
     Active Substance: PASIREOTIDE
     Dosage: 0.6 MILLIGRAM, EVERY 2 DAYS
     Route: 058
  3. SIGNIFOR [Suspect]
     Active Substance: PASIREOTIDE
     Dosage: 0.6 MILLIGRAM, TWO TIMES A DAY
     Route: 058
  4. SIGNIFOR [Suspect]
     Active Substance: PASIREOTIDE
     Dosage: 0.6 MILLIGRAM, ONCE A DAY
     Route: 058
  5. CABERGOLINE. [Concomitant]
     Active Substance: CABERGOLINE
     Indication: PRODUCT USED FOR UNKNOWN INDICATION
     Dosage: 1 MILLIGRAM, EVERY 3 WEEKS
     Route: 065
  6. GLUCOPHAGE [Concomitant]
     Active Substance: METFORMIN HYDROCHLORIDE
     Indication: PRODUCT USED FOR UNKNOWN INDICATION
     Dosage: UNK
     Route: 048
  7. KETOCONAZOLE. [Concomitant]
     Active Substance: KETOCONAZOLE
     Dosage: 900 MILLIGRAM, ONCE A DAY
     Route: 048
  8. METFORMIN [Suspect]
     Active Substance: METFORMIN HYDROCHLORIDE
     Indication: PRODUCT USED FOR UNKNOWN INDICATION
     Dosage: 250 MILLIGRAM, TWO TIMES A DAY
     Route: 048
  9. METFORMIN [Suspect]
     Active Substance: METFORMIN HYDROCHLORIDE
     Dosage: 500 MILLIGRAM
     Route: 048
  10. SIGNIFOR [Suspect]
     Active Substance: PASIREOTIDE
     Indication: PITUITARY-DEPENDENT CUSHING^S SYNDROME
     Dosage: 0.6 MILLIGRAM, TWO TIMES A DAY
     Route: 058
  11. METFORMIN [Suspect]
     Active Substance: METFORMIN HYDROCHLORIDE
     Dosage: 750 MILLIGRAM, TWO TIMES A DAY
     Route: 048
  12. TAMOXIFEN [Concomitant]
     Active Substance: TAMOXIFEN
     Indication: PRODUCT USED FOR UNKNOWN INDICATION
     Dosage: UNK
     Route: 065

REACTIONS (20)
  - Ecchymosis [Recovered/Resolved]
  - Heart rate increased [Recovered/Resolved]
  - Palpitations [Recovered/Resolved]
  - Tinnitus [Recovered/Resolved]
  - Blood creatinine increased [Recovered/Resolved]
  - Tremor [Recovered/Resolved]
  - Cortisol increased [Recovered/Resolved]
  - Blood pressure increased [Recovered/Resolved]
  - Dizziness [Recovered/Resolved]
  - Injection site erythema [Recovered/Resolved]
  - Insomnia [Recovered/Resolved]
  - Weight decreased [Recovered/Resolved]
  - Drug ineffective [Recovered/Resolved]
  - Blood pressure decreased [Recovered/Resolved]
  - Hypoglycaemia [Recovered/Resolved]
  - Fatigue [Recovered/Resolved]
  - Haemoglobin increased [Recovered/Resolved]
  - Hyperhidrosis [Recovered/Resolved]
  - Malaise [Recovered/Resolved]
  - Migraine [Recovered/Resolved]
